FAERS Safety Report 9220803 (Version 1)
Quarter: 2013Q2

REPORT INFORMATION
  Report Type: Spontaneous
  Country: US (occurrence: US)
  Receive Date: 20130409
  Receipt Date: 20130409
  Transmission Date: 20140414
  Serious: No
  Sender: FDA-Public Use
  Company Number: US-UPSHER-SMITH LABORATORIES, INC.-13000200

PATIENT
  Age: 77 Year
  Sex: Female

DRUGS (13)
  1. PREVALITE [Suspect]
     Indication: DIARRHOEA
     Dosage: 4 G, TID
     Route: 048
     Dates: start: 201112
  2. CYCLOSPORINE [Concomitant]
     Indication: RENAL TRANSPLANT
     Dosage: UNK
  3. LABETALOL [Concomitant]
     Indication: HYPERTENSION
     Dosage: UNK
  4. DIOVAN                             /01319601/ [Concomitant]
     Dosage: UNK
  5. CLONIDINE [Concomitant]
     Dosage: UNK
  6. PANTOPRAZOLE [Concomitant]
     Dosage: UNK
  7. PRAVASTATIN [Concomitant]
     Dosage: UNK
  8. VITAMIN B                          /00056102/ [Concomitant]
     Dosage: UNK
  9. VITAMIN D /00107901/ [Concomitant]
     Dosage: UNK
  10. BABY ASPIRIN [Concomitant]
     Dosage: UNK
  11. PREDNISONE [Concomitant]
     Dosage: UNK
  12. SLOW-MAG                           /00438001/ [Concomitant]
     Indication: ELECTROLYTE IMBALANCE
     Dosage: UNK
  13. POTASSIUM [Concomitant]
     Indication: ELECTROLYTE IMBALANCE
     Dosage: UNK

REACTIONS (1)
  - Oedema peripheral [Not Recovered/Not Resolved]
